FAERS Safety Report 6883232-2 (Version None)
Quarter: 2010Q3

REPORT INFORMATION
  Report Type: 
  Country: None (occurrence: None)
  Receive Date: 20100727
  Receipt Date: 20070917
  Transmission Date: 20110219
  Serious: Yes (Hospitalization, Other)
  Sender: FDA-Public Use
  Company Number: US-PFIZER INC-2007004723

PATIENT
  Sex: Male
  Weight: 93 kg

DRUGS (3)
  1. CELEBREX [Suspect]
     Indication: PAIN
     Route: 048
     Dates: start: 20040709, end: 20040909
  2. BEXTRA [Suspect]
     Indication: PAIN
     Route: 048
     Dates: start: 20041105, end: 20041205
  3. VIOXX [Suspect]
     Indication: OSTEOARTHRITIS
     Route: 048
     Dates: start: 20030214, end: 20040930

REACTIONS (1)
  - PULMONARY EMBOLISM [None]
